FAERS Safety Report 9028467 (Version 1)
Quarter: 2013Q1

REPORT INFORMATION
  Report Type: Spontaneous
  Country: US (occurrence: US)
  Receive Date: 20130124
  Receipt Date: 20130124
  Transmission Date: 20140127
  Serious: Yes (Other)
  Sender: FDA-Public Use
  Company Number: US-INCYTE CORPORATION-2013IN000127

PATIENT
  Age: 63 None
  Sex: Female

DRUGS (3)
  1. JAKAFI [Suspect]
     Dosage: 10 MG, BID
     Route: 048
     Dates: start: 20120402
  2. HYDREA [Concomitant]
  3. COUMADIN [Concomitant]

REACTIONS (4)
  - Mesenteric vein thrombosis [Unknown]
  - Varices oesophageal [Unknown]
  - Splenomegaly [Unknown]
  - Malaise [Unknown]
